FAERS Safety Report 14274529 (Version 2)
Quarter: 2017Q4

REPORT INFORMATION
  Report Type: Spontaneous
  Country: JP (occurrence: JP)
  Receive Date: 20171211
  Receipt Date: 20171227
  Transmission Date: 20180321
  Serious: Yes (Other)
  Sender: FDA-Public Use
  Company Number: JP-009507513-1712JPN000393J

PATIENT
  Age: 9 Decade
  Sex: Female

DRUGS (4)
  1. MAGMITT [Concomitant]
     Active Substance: MAGNESIUM OXIDE
     Dosage: UNK, PRN
     Route: 048
  2. ZETIA [Suspect]
     Active Substance: EZETIMIBE
     Indication: DYSLIPIDAEMIA
     Dosage: 10 MG, QD
     Route: 048
     Dates: start: 20171201
  3. NITOROL [Concomitant]
     Active Substance: ISOSORBIDE DINITRATE
     Dosage: UNK, PRN
     Route: 048
  4. CRESTOR [Concomitant]
     Active Substance: ROSUVASTATIN CALCIUM
     Dosage: UNK
     Route: 048

REACTIONS (3)
  - Vagus nerve disorder [Unknown]
  - Dizziness [Recovered/Resolved]
  - Loss of consciousness [Recovered/Resolved]

NARRATIVE: CASE EVENT DATE: 20171204
